FAERS Safety Report 8491963-6 (Version None)
Quarter: 2012Q3

REPORT INFORMATION
  Report Type: 
  Country: None (occurrence: None)
  Receive Date: 20120706
  Receipt Date: 20120628
  Transmission Date: 20120928
  Serious: Yes (Other)
  Sender: FDA-Public Use
  Company Number: US-AMGEN-USASP2012029523

PATIENT
  Age: 39 Year
  Sex: Female

DRUGS (5)
  1. ENBREL [Suspect]
     Indication: PSORIASIS
     Dosage: 50 MG, UNK
     Dates: start: 20120508
  2. HUMIRA [Suspect]
     Dosage: UNK
     Dates: end: 20110901
  3. ENBREL [Suspect]
     Dosage: UNK MG, UNK
     Dates: start: 20050526
  4. METHOTREXATE [Concomitant]
     Dosage: UNK
     Dates: start: 20120201, end: 20120401
  5. PREDNISONE TAB [Concomitant]
     Dosage: UNK
     Dates: start: 20110901

REACTIONS (6)
  - SWELLING [None]
  - RASH MACULAR [None]
  - ANXIETY [None]
  - WEIGHT INCREASED [None]
  - MOUTH ULCERATION [None]
  - LUPUS-LIKE SYNDROME [None]
